FAERS Safety Report 19941861 (Version 1)
Quarter: 2021Q4

REPORT INFORMATION
  Report Type: Spontaneous
  Country: AR (occurrence: AR)
  Receive Date: 20211011
  Receipt Date: 20211011
  Transmission Date: 20220303
  Serious: Yes (Hospitalization)
  Sender: FDA-Public Use
  Company Number: AR-LUNDBECK-DKLU3039277

PATIENT
  Sex: Female

DRUGS (1)
  1. REXULTI [Suspect]
     Active Substance: BREXPIPRAZOLE
     Indication: Product used for unknown indication
     Dosage: UNK
     Route: 065

REACTIONS (6)
  - Eye swelling [Unknown]
  - Psychiatric decompensation [Unknown]
  - Diarrhoea [Unknown]
  - Anxiety [Unknown]
  - Increased appetite [Unknown]
  - Weight increased [Unknown]
